FAERS Safety Report 4492862-7 (Version None)
Quarter: 2004Q4

REPORT INFORMATION
  Report Type: 
  Country: None (occurrence: None)
  Receive Date: 20041102
  Receipt Date: 20021211
  Transmission Date: 20050328
  Serious: Yes (Hospitalization)
  Sender: FDA-Public Use
  Company Number: 2002-DE-03375DE

PATIENT
  Age: 63 Year
  Sex: Male

DRUGS (7)
  1. SPIRIVA [Suspect]
     Indication: CHRONIC OBSTRUCTIVE AIRWAYS DISEASE
     Dosage: 18 MCG (18 MCG, 1 IN 1 D) IH
     Route: 055
     Dates: start: 20020701, end: 20020911
  2. FORADIL [Concomitant]
  3. MIFLONIDE 400 (ANTI-ASTHMATICS) [Concomitant]
  4. BRONCHORET 350 (THEOPHYLLINE) [Concomitant]
  5. LANITOP (METILDIGOXIN) [Concomitant]
  6. ACTOS [Concomitant]
  7. SORTIS 10 (LIPOREDUCT) [Concomitant]

REACTIONS (4)
  - AGEUSIA [None]
  - ANOREXIA [None]
  - DRY MOUTH [None]
  - WEIGHT DECREASED [None]
